FAERS Safety Report 21564618 (Version 4)
Quarter: 2023Q4

REPORT INFORMATION
  Report Type: Report from Study
  Country: IT (occurrence: IT)
  Receive Date: 20221108
  Receipt Date: 20231019
  Transmission Date: 20240110
  Serious: Yes (Hospitalization)
  Sender: FDA-Public Use
  Company Number: IT-ABBVIE-4189534

PATIENT
  Age: 49 Year
  Sex: Male

DRUGS (6)
  1. RISANKIZUMAB [Suspect]
     Active Substance: RISANKIZUMAB
     Indication: Product used for unknown indication
     Dosage: 150 MG PER MONTH
     Route: 058
     Dates: start: 20211007, end: 20211102
  2. RISANKIZUMAB [Suspect]
     Active Substance: RISANKIZUMAB
     Dosage: 150 MG PER 3 MONTH
     Route: 058
     Dates: start: 20211102
  3. ENOXAPARIN SODIUM [Concomitant]
     Active Substance: ENOXAPARIN SODIUM
     Indication: Anticoagulant therapy
     Dosage: 1 VIAL
     Route: 058
     Dates: start: 20221107
  4. ENOXAPARIN SODIUM [Concomitant]
     Active Substance: ENOXAPARIN SODIUM
     Indication: Anticoagulant therapy
     Dosage: 1 VIAL, DAILY
     Route: 058
     Dates: start: 20221107
  5. ACETAMINOPHEN\IBUPROFEN [Concomitant]
     Active Substance: ACETAMINOPHEN\IBUPROFEN
     Indication: Analgesic therapy
     Dosage: 1 TABLET
     Route: 048
     Dates: start: 20221107
  6. CLODRONATE DISODIUM [Concomitant]
     Active Substance: CLODRONATE DISODIUM
     Indication: Bone disorder
     Dosage: 200 MILLIGRAM
     Route: 030
     Dates: start: 20221107

REACTIONS (1)
  - Foot fracture [Recovered/Resolved with Sequelae]

NARRATIVE: CASE EVENT DATE: 20221031
